FAERS Safety Report 20712643 (Version 2)
Quarter: 2022Q2

REPORT INFORMATION
  Report Type: Other
  Country: GB (occurrence: None)
  Receive Date: 20220415
  Receipt Date: 20220531
  Transmission Date: 20220720
  Serious: Yes (Other)
  Sender: FDA-Public Use
  Company Number: GB-ROCHE-2861190

PATIENT
  Age: 65 Year
  Sex: Male
  Weight: 85.15 kg

DRUGS (27)
  1. ATEZOLIZUMAB [Suspect]
     Active Substance: ATEZOLIZUMAB
     Indication: Non-small cell lung cancer
     Dosage: DATE OF RECENT DOSE OF STUDY DRUG: 31/MAY/2021
     Route: 041
  2. BEVACIZUMAB [Suspect]
     Active Substance: BEVACIZUMAB
     Indication: Non-small cell lung cancer
     Dosage: DATE OF RECENT DOSE OF STUDY DRUG: 31/MAY/2021
     Route: 042
  3. CARBOPLATIN [Suspect]
     Active Substance: CARBOPLATIN
     Indication: Non-small cell lung cancer
     Dosage: DATE OF RECENT DOSE OF STUDY DRUG: 31/MAY/2021
     Route: 065
  4. PACLITAXEL [Suspect]
     Active Substance: PACLITAXEL
     Indication: Non-small cell lung cancer
     Dosage: DATE OF RECENT DOSE OF STUDY DRUG: 31/MAY/2021
     Route: 065
  5. DEXAMETHASONE [Concomitant]
     Active Substance: DEXAMETHASONE
     Dates: start: 20210531, end: 20210531
  6. DEXAMETHASONE [Concomitant]
     Active Substance: DEXAMETHASONE
     Dates: start: 20210621, end: 20210621
  7. DEXAMETHASONE [Concomitant]
     Active Substance: DEXAMETHASONE
     Dates: start: 20210416, end: 20210416
  8. FAMOTIDINE [Concomitant]
     Active Substance: FAMOTIDINE
     Dates: start: 20210621, end: 20210621
  9. FAMOTIDINE [Concomitant]
     Active Substance: FAMOTIDINE
     Dates: start: 20210531, end: 20210531
  10. FAMOTIDINE [Concomitant]
     Active Substance: FAMOTIDINE
     Dates: start: 20210416, end: 20210416
  11. ONDANSETRON [Concomitant]
     Active Substance: ONDANSETRON
     Dates: start: 20210621, end: 20210621
  12. ONDANSETRON [Concomitant]
     Active Substance: ONDANSETRON
     Dates: start: 20210416, end: 20210416
  13. ONDANSETRON [Concomitant]
     Active Substance: ONDANSETRON
     Dates: start: 20210531, end: 20210531
  14. FELODIPINE [Concomitant]
     Active Substance: FELODIPINE
     Dates: start: 20210416, end: 20210416
  15. LEVOTHYROXINE [Concomitant]
     Active Substance: LEVOTHYROXINE
  16. OMEPRAZOLE [Concomitant]
     Active Substance: OMEPRAZOLE
     Indication: Prophylaxis
  17. CALCIUM CARBONATE\CHOLECALCIFEROL [Concomitant]
     Active Substance: CALCIUM CARBONATE\CHOLECALCIFEROL
     Indication: Prophylaxis
  18. PREDNISOLONE [Concomitant]
     Active Substance: PREDNISOLONE
     Dates: start: 20210512, end: 20210804
  19. PREDNISOLONE [Concomitant]
     Active Substance: PREDNISOLONE
     Dates: start: 20211210, end: 20220204
  20. MAGNESIUM ASPARTATE [Concomitant]
     Active Substance: MAGNESIUM ASPARTATE
  21. DOMPERIDONE [Concomitant]
     Active Substance: DOMPERIDONE
  22. SENNAE [Concomitant]
  23. LACTULOSE [Concomitant]
     Active Substance: LACTULOSE
  24. LORAZEPAM [Concomitant]
     Active Substance: LORAZEPAM
     Dates: start: 20211011
  25. FLUOXETINE [Concomitant]
     Active Substance: FLUOXETINE HYDROCHLORIDE
     Indication: Prophylaxis
     Dates: start: 20211011
  26. METOCLOPRAMIDE [Concomitant]
     Active Substance: METOCLOPRAMIDE
     Dates: start: 20210914
  27. ACETAMINOPHEN [Concomitant]
     Active Substance: ACETAMINOPHEN
     Dates: start: 20220510

REACTIONS (3)
  - Autoimmune hepatitis [Recovered/Resolved]
  - Liver function test abnormal [Recovered/Resolved]
  - Constipation [Not Recovered/Not Resolved]

NARRATIVE: CASE EVENT DATE: 20210506
